FAERS Safety Report 16251536 (Version 2)
Quarter: 2019Q2

REPORT INFORMATION
  Report Type: Spontaneous
  Country: US (occurrence: US)
  Receive Date: 20190429
  Receipt Date: 20190520
  Transmission Date: 20190711
  Serious: Yes (Other)
  Sender: FDA-Public Use
  Company Number: US-PFIZER INC-2019171785

PATIENT
  Age: 65 Year
  Sex: Female
  Weight: 77.1 kg

DRUGS (1)
  1. MEPERIDINE HCL [Suspect]
     Active Substance: MEPERIDINE HYDROCHLORIDE
     Dosage: UNK
     Dates: start: 20180914

REACTIONS (5)
  - Nausea [Unknown]
  - Anaphylactic reaction [Unknown]
  - Vomiting [Unknown]
  - Drug hypersensitivity [Unknown]
  - Dyspnoea [Unknown]
